FAERS Safety Report 13497357 (Version 1)
Quarter: 2017Q2

REPORT INFORMATION
  Report Type: Spontaneous
  Country: US (occurrence: US)
  Receive Date: 20170428
  Receipt Date: 20170428
  Transmission Date: 20170830
  Serious: Yes (Hospitalization)
  Sender: FDA-Public Use
  Company Number: US-NOVOPROD-542764

PATIENT
  Sex: Male
  Weight: 3.6 kg

DRUGS (2)
  1. LEVEMIR [Suspect]
     Active Substance: INSULIN DETEMIR
     Indication: GESTATIONAL DIABETES
     Dosage: 90 U, QD
     Route: 064
     Dates: start: 20160830, end: 20161004
  2. NOVOLOG [Suspect]
     Active Substance: INSULIN ASPART
     Indication: GESTATIONAL DIABETES
     Dosage: 6-10 UNITS WITH EVERY MEAL DURING THE END OF PREGNANCY
     Route: 064
     Dates: start: 20160830, end: 20161004

REACTIONS (3)
  - Respiratory rate increased [Recovered/Resolved]
  - Blood glucose decreased [Recovered/Resolved]
  - Foetal exposure during pregnancy [Recovered/Resolved]

NARRATIVE: CASE EVENT DATE: 20160830
